FAERS Safety Report 22183598 (Version 1)
Quarter: 2023Q2

REPORT INFORMATION
  Report Type: Spontaneous
  Country: GB (occurrence: GB)
  Receive Date: 20230406
  Receipt Date: 20230406
  Transmission Date: 20230721
  Serious: Yes (Other)
  Sender: FDA-Public Use
  Company Number: GB-MYLANLABS-2023M1035565

PATIENT
  Age: 40 Year
  Sex: Female

DRUGS (3)
  1. FINGOLIMOD [Suspect]
     Active Substance: FINGOLIMOD
     Indication: Multiple sclerosis
     Dosage: UNK
     Route: 065
  2. IMIQUIMOD [Suspect]
     Active Substance: IMIQUIMOD
     Indication: Molluscum contagiosum
     Dosage: UNK
     Route: 065
  3. HYDROGEN PEROXIDE [Suspect]
     Active Substance: HYDROGEN PEROXIDE
     Indication: Molluscum contagiosum
     Dosage: UNK
     Route: 065

REACTIONS (2)
  - Molluscum contagiosum [Unknown]
  - Therapy non-responder [Unknown]
